FAERS Safety Report 4819620-5 (Version None)
Quarter: 2005Q4

REPORT INFORMATION
  Report Type: 
  Country: None (occurrence: None)
  Receive Date: 20051102
  Receipt Date: 20051026
  Transmission Date: 20060501
  Serious: Yes (Other)
  Sender: FDA-Public Use
  Company Number: 216608

PATIENT
  Age: 29 Year
  Sex: Female

DRUGS (6)
  1. RAPTIVA [Suspect]
     Indication: PSORIASIS
     Dosage: 125 MG, 1 WEEK
     Dates: start: 20050328, end: 20050401
  2. RAPTIVA [Suspect]
     Indication: PSORIASIS
     Dosage: 125 MG, 1 WEEK
     Dates: start: 20050501
  3. CLOBETASOL OINTMENT (CLOBETASOL PROPINOATE) [Concomitant]
  4. ANTIBIOTIC (ANTIBIOTIC NOS) [Concomitant]
  5. METHOTREXATE [Concomitant]
  6. FIORINAL [Concomitant]

REACTIONS (6)
  - DRUG DOSE OMISSION [None]
  - DYSFUNCTIONAL UTERINE BLEEDING [None]
  - DYSMENORRHOEA [None]
  - PUSTULAR PSORIASIS [None]
  - REBOUND EFFECT [None]
  - WHITE BLOOD CELL COUNT INCREASED [None]
